FAERS Safety Report 5342160-4 (Version None)
Quarter: 2007Q2

REPORT INFORMATION
  Report Type: 
  Country: None (occurrence: None)
  Receive Date: 20070601
  Receipt Date: 20070530
  Transmission Date: 20071010
  Serious: Yes (Other)
  Sender: FDA-Public Use
  Company Number: A0653563A

PATIENT
  Age: 79 Year
  Sex: Male

DRUGS (13)
  1. AVODART [Suspect]
     Indication: DRUG USE FOR UNKNOWN INDICATION
     Route: 048
  2. METFORMIN HCL [Suspect]
     Dosage: 500MG THREE TIMES PER DAY
     Route: 048
  3. CALCIUM + VITAMIN D [Concomitant]
     Route: 065
  4. CARDIZEM [Concomitant]
     Route: 065
  5. FLOMAX [Concomitant]
     Route: 065
  6. FOSAMAX [Concomitant]
     Route: 065
  7. GLYBURIDE [Concomitant]
     Route: 065
  8. IMDUR [Concomitant]
     Route: 065
  9. LORAZEPAM [Concomitant]
     Route: 065
  10. MOTILIUM [Concomitant]
     Route: 065
  11. NEXIUM [Concomitant]
     Route: 065
  12. PLAVIX [Concomitant]
     Route: 065
  13. PREDNISONE TAB [Concomitant]
     Route: 065

REACTIONS (1)
  - PANCREATITIS [None]
